FAERS Safety Report 10223105 (Version 1)
Quarter: 2014Q2

REPORT INFORMATION
  Report Type: Spontaneous
  Country: GB (occurrence: GB)
  Receive Date: 20140607
  Receipt Date: 20140607
  Transmission Date: 20141212
  Serious: Yes (Other)
  Sender: FDA-Public Use
  Company Number: PHHY2014GB066393

PATIENT
  Age: 45 Year
  Sex: Female
  Weight: 70 kg

DRUGS (1)
  1. AMOXICILLIN [Suspect]
     Indication: LUNG INFECTION
     Dosage: 500 MG, UNK
     Route: 048
     Dates: start: 20140512

REACTIONS (3)
  - Lethargy [Not Recovered/Not Resolved]
  - Fatigue [Unknown]
  - Asthenia [Unknown]
